FAERS Safety Report 9551639 (Version 1)
Quarter: 2013Q3

REPORT INFORMATION
  Report Type: Spontaneous
  Country: US (occurrence: None)
  Receive Date: 20130923
  Receipt Date: 20130923
  Transmission Date: 20140515
  Serious: No
  Sender: FDA-Public Use
  Company Number: None

PATIENT
  Age: 58 Year
  Sex: Female

DRUGS (1)
  1. ZOLEDRONIC ACID 5 MG/100 ML SINGLE DOSE [Suspect]
     Dosage: INFUSE 5 MG INTRAVENOUSLY IN MD OFFICE ONCE A YEAR
     Dates: start: 201210

REACTIONS (1)
  - Burning sensation [None]
